FAERS Safety Report 6137670-6 (Version None)
Quarter: 2009Q1

REPORT INFORMATION
  Report Type: 
  Country: None (occurrence: None)
  Receive Date: 20090331
  Receipt Date: 20090319
  Transmission Date: 20090719
  Serious: Yes (Hospitalization)
  Sender: FDA-Public Use
  Company Number: PHHY2009GB10614

PATIENT
  Sex: Female

DRUGS (1)
  1. VOLTAROL PAIN- EZE(NCH) [Suspect]

REACTIONS (6)
  - HEARING IMPAIRED [None]
  - OEDEMA PERIPHERAL [None]
  - PRURITUS GENERALISED [None]
  - SWELLING FACE [None]
  - SWOLLEN TONGUE [None]
  - VISUAL IMPAIRMENT [None]
